FAERS Safety Report 17597443 (Version 1)
Quarter: 2020Q1

REPORT INFORMATION
  Report Type: Spontaneous
  Country: US (occurrence: US)
  Receive Date: 20200330
  Receipt Date: 20200330
  Transmission Date: 20200409
  Serious: No
  Sender: FDA-Public Use
  Company Number: US-ASTRAZENECA-2020SE33237

PATIENT
  Sex: Female

DRUGS (2)
  1. FASLODEX [Suspect]
     Active Substance: FULVESTRANT
     Indication: BREAST CANCER FEMALE
     Route: 030
  2. IBRANCE [Suspect]
     Active Substance: PALBOCICLIB
     Indication: BREAST CANCER
     Route: 048
     Dates: start: 20200220

REACTIONS (7)
  - Fatigue [Unknown]
  - Stomatitis [Unknown]
  - Dyspepsia [Unknown]
  - Dyspnoea [Unknown]
  - Myalgia [Unknown]
  - Ascites [Unknown]
  - Abdominal pain upper [Unknown]
